FAERS Safety Report 23885446 (Version 1)
Quarter: 2024Q2

REPORT INFORMATION
  Report Type: Report from Study
  Country: JP (occurrence: JP)
  Receive Date: 20240522
  Receipt Date: 20240522
  Transmission Date: 20240716
  Serious: Yes (Death)
  Sender: FDA-Public Use
  Company Number: JP-shionogi-202403760_FTR_P_1

PATIENT

DRUGS (1)
  1. FETROJA [Suspect]
     Active Substance: CEFIDEROCOL SULFATE TOSYLATE
     Indication: Pneumonia bacterial
     Dosage: UNK
     Route: 065

REACTIONS (1)
  - Aortic aneurysm rupture [Fatal]
